APPROVED DRUG PRODUCT: VENLAFAXINE HYDROCHLORIDE
Active Ingredient: VENLAFAXINE HYDROCHLORIDE
Strength: EQ 50MG BASE
Dosage Form/Route: TABLET;ORAL
Application: A078301 | Product #003 | TE Code: AB
Applicant: DR REDDYS LABORATORIES LTD
Approved: Jun 13, 2008 | RLD: No | RS: No | Type: RX